FAERS Safety Report 5800597-0 (Version None)
Quarter: 2008Q3

REPORT INFORMATION
  Report Type: 
  Country: None (occurrence: None)
  Receive Date: 20080703
  Receipt Date: 20080625
  Transmission Date: 20090109
  Serious: Yes (Death, Other)
  Sender: FDA-Public Use
  Company Number: JP-BRISTOL-MYERS SQUIBB COMPANY-14247654

PATIENT
  Age: 76 Year
  Sex: Male

DRUGS (3)
  1. ENDOXAN [Suspect]
     Indication: LYMPHOMA
     Dates: start: 20071114
  2. PREDONINE [Suspect]
     Indication: LYMPHOMA
     Dosage: 1 DOSAGE FORM = 70 UNK UNITS
     Dates: start: 20071114
  3. VINCRISTINE SULFATE [Concomitant]
     Indication: LYMPHOMA
     Dates: start: 20071114

REACTIONS (3)
  - EPISTAXIS [None]
  - MALIGNANT NEOPLASM PROGRESSION [None]
  - SMALL INTESTINAL PERFORATION [None]
